FAERS Safety Report 15017840 (Version 3)
Quarter: 2020Q3

REPORT INFORMATION
  Report Type: Report from Study
  Country: KR (occurrence: KR)
  Receive Date: 20180615
  Receipt Date: 20180724
  Transmission Date: 20201105
  Serious: Yes (Hospitalization)
  Sender: FDA-Public Use
  Company Number: KR-ASTRAZENECA-2018SE74120

PATIENT
  Age: 68 Year
  Sex: Male

DRUGS (19)
  1. ASPIRIN. [Concomitant]
     Active Substance: ASPIRIN
     Indication: HYPERTENSION
     Route: 048
     Dates: start: 20150205, end: 20170424
  2. ATACAND [Concomitant]
     Active Substance: CANDESARTAN CILEXETIL
     Indication: HYPERTENSION
     Route: 048
     Dates: start: 20150205, end: 20170424
  3. CRESTOR [Concomitant]
     Active Substance: ROSUVASTATIN CALCIUM
     Indication: HYPERCHOLESTEROLAEMIA
     Route: 048
     Dates: start: 20170524
  4. MEDI4736 [Suspect]
     Active Substance: DURVALUMAB
     Indication: BLADDER CANCER
     Route: 042
     Dates: start: 20170308, end: 20170308
  5. MEDI4736 [Suspect]
     Active Substance: DURVALUMAB
     Indication: BLADDER CANCER
     Route: 042
     Dates: start: 20170322, end: 20170322
  6. ATACAND [Concomitant]
     Active Substance: CANDESARTAN CILEXETIL
     Indication: HYPERTENSION
     Route: 048
     Dates: start: 20170524
  7. CRESTOR [Concomitant]
     Active Substance: ROSUVASTATIN CALCIUM
     Indication: HYPERCHOLESTEROLAEMIA
     Route: 048
     Dates: start: 20150518, end: 20170424
  8. MEDI4736 [Suspect]
     Active Substance: DURVALUMAB
     Indication: BLADDER CANCER
     Route: 042
     Dates: start: 20161228, end: 20161228
  9. PLAVIX [Concomitant]
     Active Substance: CLOPIDOGREL BISULFATE
     Indication: CEREBRAL INFARCTION
     Route: 048
     Dates: start: 20150205, end: 20170424
  10. TREMELIMUMAB. [Suspect]
     Active Substance: TREMELIMUMAB
     Indication: BLADDER CANCER
     Route: 042
     Dates: start: 20161228, end: 20161228
  11. MEDI4736 [Suspect]
     Active Substance: DURVALUMAB
     Indication: BLADDER CANCER
     Route: 042
     Dates: start: 20161102, end: 20161102
  12. TREMELIMUMAB. [Suspect]
     Active Substance: TREMELIMUMAB
     Indication: BLADDER CANCER
     Route: 042
     Dates: start: 20161102, end: 20161102
  13. TREMELIMUMAB. [Suspect]
     Active Substance: TREMELIMUMAB
     Indication: BLADDER CANCER
     Route: 042
     Dates: start: 20161207, end: 20161207
  14. MEDI4736 [Suspect]
     Active Substance: DURVALUMAB
     Indication: BLADDER CANCER
     Route: 042
     Dates: start: 20170222, end: 20170222
  15. STOGAR [Concomitant]
     Active Substance: LAFUTIDINE
     Indication: CEREBRAL INFARCTION
     Route: 048
     Dates: start: 20170524
  16. MEDI4736 [Suspect]
     Active Substance: DURVALUMAB
     Indication: BLADDER CANCER
     Route: 042
     Dates: start: 20170405, end: 20170405
  17. MEDI4736 [Suspect]
     Active Substance: DURVALUMAB
     Indication: BLADDER CANCER
     Route: 042
     Dates: start: 20161207, end: 20161207
  18. PLAVIX [Concomitant]
     Active Substance: CLOPIDOGREL BISULFATE
     Indication: CEREBRAL INFARCTION
     Route: 048
     Dates: start: 20170524
  19. STOGAR [Concomitant]
     Active Substance: LAFUTIDINE
     Indication: CEREBRAL INFARCTION
     Route: 048
     Dates: start: 20150205, end: 20170424

REACTIONS (1)
  - Pericarditis [Recovered/Resolved]

NARRATIVE: CASE EVENT DATE: 20170428
